FAERS Safety Report 8044076-1 (Version None)
Quarter: 2012Q1

REPORT INFORMATION
  Report Type: 
  Country: None (occurrence: None)
  Receive Date: 20120113
  Receipt Date: 20120106
  Transmission Date: 20120608
  Serious: Yes (Death, Disabling, Other)
  Sender: FDA-Public Use
  Company Number: US-BAYER-2011-051097

PATIENT
  Age: 51 Year
  Sex: Female
  Weight: 124.26 kg

DRUGS (14)
  1. PREDNISONE [Concomitant]
     Dosage: 10 MG, QD
     Dates: start: 20090620
  2. YASMIN [Suspect]
     Dosage: UNK
     Dates: start: 20071101, end: 20090601
  3. ZYPREXA [Concomitant]
     Indication: BIPOLAR DISORDER
     Dosage: UNK UNK, QD
     Dates: start: 20090527
  4. PLAVIX [Concomitant]
     Dosage: 75 MG, QD
  5. LITHIUM CARBONATE [Concomitant]
     Indication: BIPOLAR DISORDER
     Dosage: UNK UNK, QD
     Dates: start: 20090527, end: 20090621
  6. MELOXIAM [Concomitant]
     Indication: PAIN
     Dosage: 15 MG, QD
     Dates: start: 20090527, end: 20090620
  7. NEURONTIN [Concomitant]
     Indication: NEURALGIA
     Dosage: UNK
     Dates: start: 20070602, end: 20090621
  8. CYCLOBENZAPRINE [Concomitant]
     Indication: MUSCLE RELAXANT THERAPY
     Dosage: UNK UNK, QD
     Dates: start: 20090527, end: 20090621
  9. FLUOXETINE [Concomitant]
     Indication: BIPOLAR DISORDER
     Dosage: 40 MG, BID
  10. LEXAPRO [Concomitant]
     Dosage: UNK
  11. CARDIOVASCULAR MEDICATION [Concomitant]
  12. HYDROCODONE BITARTRATE [Concomitant]
     Indication: PAIN
     Dosage: UNK UNK, QD
     Dates: start: 20090527
  13. DIOVAN [Concomitant]
     Dosage: UNK UNK, QD
  14. DROSPIRENONE AND ETHINYL ESTRADIOL [Suspect]
     Dosage: UNK
     Dates: start: 20071101, end: 20090601

REACTIONS (5)
  - GENERAL PHYSICAL HEALTH DETERIORATION [None]
  - PAIN [None]
  - ANXIETY [None]
  - EMOTIONAL DISTRESS [None]
  - CEREBROVASCULAR ACCIDENT [None]
